FAERS Safety Report 7169789-5 (Version None)
Quarter: 2010Q4

REPORT INFORMATION
  Report Type: 
  Country: None (occurrence: None)
  Receive Date: 20101217
  Receipt Date: 20100909
  Transmission Date: 20110411
  Serious: No
  Sender: FDA-Public Use
  Company Number: A0880506A

PATIENT
  Age: 70 Year
  Sex: Female

DRUGS (11)
  1. SORIATANE [Suspect]
     Indication: MYCOSIS FUNGOIDES
     Dosage: 25MG PER DAY
     Route: 048
     Dates: start: 20100501, end: 20100908
  2. PRAVACHOL [Concomitant]
  3. ZESTRIL [Concomitant]
  4. NEURONTIN [Concomitant]
  5. METHOTREXATE [Concomitant]
  6. PREMARIN [Concomitant]
  7. VITAMINS [Concomitant]
  8. CALCIUM [Concomitant]
  9. UNKNOWN MEDICATION [Concomitant]
  10. ASPIRIN [Concomitant]
  11. BENADRYL [Concomitant]

REACTIONS (1)
  - DRUG INEFFECTIVE [None]
